FAERS Safety Report 5121721-1 (Version None)
Quarter: 2006Q4

REPORT INFORMATION
  Report Type: 
  Country: None (occurrence: None)
  Receive Date: 20061006
  Receipt Date: 20060918
  Transmission Date: 20070319
  Serious: Yes (Hospitalization)
  Sender: FDA-Public Use
  Company Number: IT-AVENTIS-200619728GDDC

PATIENT
  Age: 53 Year
  Sex: Female

DRUGS (12)
  1. TAXOTERE [Suspect]
     Indication: BREAST CANCER
     Route: 042
     Dates: start: 20060823, end: 20060823
  2. RANIDIL [Suspect]
     Dates: start: 20060823, end: 20060823
  3. KYTRIL [Suspect]
     Dates: start: 20060823, end: 20060823
  4. DEXAMETHASONE TAB [Suspect]
     Dates: start: 20060823, end: 20060823
  5. TRIMETON [Suspect]
     Dates: start: 20060823, end: 20060823
  6. MYELOSTIM 34 [Suspect]
     Indication: HAEMATOTOXICITY
     Dates: start: 20060901, end: 20060903
  7. DELTACORTENE [Concomitant]
     Indication: PREMEDICATION
  8. RANITIDINE [Concomitant]
     Indication: PREMEDICATION
  9. CLARITIN [Concomitant]
     Indication: PREMEDICATION
  10. MEDROL [Concomitant]
     Indication: PREMEDICATION
  11. ZYRTEC [Concomitant]
     Indication: PREMEDICATION
  12. NEUPOGEN [Concomitant]

REACTIONS (3)
  - CEREBRAL ISCHAEMIA [None]
  - HAEMATOTOXICITY [None]
  - VISUAL FIELD DEFECT [None]
